FAERS Safety Report 14495529 (Version 1)
Quarter: 2018Q1

REPORT INFORMATION
  Report Type: Report from Study
  Country: None (occurrence: US)
  Receive Date: 20180206
  Receipt Date: 20180206
  Transmission Date: 20180509
  Serious: Yes (Death)
  Sender: FDA-Public Use
  Company Number: US-VIFOR (INTERNATIONAL) INC.-VIT-2018-01159

PATIENT
  Age: 66 Year
  Sex: Male

DRUGS (10)
  1. TRICHLORMETHIAZIDE [Concomitant]
     Active Substance: TRICHLORMETHIAZIDE
     Dates: start: 20170615
  2. ABILIFY [Concomitant]
     Active Substance: ARIPIPRAZOLE
     Dates: start: 20170615
  3. SIMVASTATIN. [Concomitant]
     Active Substance: SIMVASTATIN
     Dates: start: 20170615
  4. ZOLOFT [Concomitant]
     Active Substance: SERTRALINE HYDROCHLORIDE
     Dates: start: 20170615
  5. VELTASSA [Suspect]
     Active Substance: PATIROMER
     Indication: HYPERKALAEMIA
     Route: 048
     Dates: start: 20161230, end: 20180122
  6. METOPROLOL TARTRATE. [Concomitant]
     Active Substance: METOPROLOL TARTRATE
     Dates: start: 20170615
  7. NOVOLOG [Concomitant]
     Active Substance: INSULIN ASPART
     Dates: start: 20170615
  8. CALCITRIOL. [Concomitant]
     Active Substance: CALCITRIOL
     Dates: start: 20170615
  9. ZETIA [Concomitant]
     Active Substance: EZETIMIBE
     Dates: start: 20170615
  10. JANUVIA [Concomitant]
     Active Substance: SITAGLIPTIN PHOSPHATE
     Dates: start: 20170615

REACTIONS (1)
  - Death [Fatal]

NARRATIVE: CASE EVENT DATE: 20180122
